FAERS Safety Report 5845333-7 (Version None)
Quarter: 2008Q3

REPORT INFORMATION
  Report Type: 
  Country: None (occurrence: None)
  Receive Date: 20080814
  Receipt Date: 20080728
  Transmission Date: 20090109
  Serious: Yes (Death, Other)
  Sender: FDA-Public Use
  Company Number: GB-AVENTIS-200418256GDDC

PATIENT
  Age: 67 Year
  Sex: Male

DRUGS (9)
  1. GLYBENCLAMIDE [Suspect]
     Route: 048
  2. HUMAN INSULIN SOLUBLE [Concomitant]
     Dosage: DOSE: UNK
  3. HUMAN INSULIN SOLUBLE [Concomitant]
  4. PENICILLIN G [Concomitant]
     Dosage: DOSE: 1 MGU
     Route: 042
  5. PENICILLIN G [Concomitant]
     Dosage: DOSE: 1 MGU
     Route: 042
  6. CLOXACILLIN SODIUM [Concomitant]
     Route: 042
  7. CLOXACILLIN SODIUM [Concomitant]
     Route: 042
  8. SOFRATULLE                         /00038002/ [Concomitant]
     Dosage: DOSE: UNK
     Route: 061
  9. WELLDORM [Concomitant]
     Dosage: DOSE: UNK

REACTIONS (5)
  - BRONCHOPNEUMONIA [None]
  - HEPATITIS CHOLESTATIC [None]
  - RENAL VASCULITIS [None]
  - STEVENS-JOHNSON SYNDROME [None]
  - VASCULITIS [None]
